FAERS Safety Report 17508659 (Version 1)
Quarter: 2020Q1

REPORT INFORMATION
  Report Type: Spontaneous
  Country: IL (occurrence: IL)
  Receive Date: 20200306
  Receipt Date: 20200306
  Transmission Date: 20200409
  Serious: Yes (Other)
  Sender: FDA-Public Use
  Company Number: IL-ALK-ABELLO A/S-2020AA000666

PATIENT

DRUGS (1)
  1. ACARIZAX [Suspect]
     Active Substance: DERMATOPHAGOIDES FARINAE\DERMATOPHAGOIDES PTERONYSSINUS
     Indication: PRODUCT USED FOR UNKNOWN INDICATION
     Dosage: UNK
     Dates: start: 202002, end: 20200303

REACTIONS (3)
  - Pharyngeal oedema [Recovered/Resolved]
  - Abdominal pain [Unknown]
  - Oral pruritus [Unknown]

NARRATIVE: CASE EVENT DATE: 20200224
